FAERS Safety Report 20071666 (Version 3)
Quarter: 2021Q4

REPORT INFORMATION
  Report Type: Report from Study
  Country: RO (occurrence: RO)
  Receive Date: 20211116
  Receipt Date: 20211125
  Transmission Date: 20220303
  Serious: Yes (Death, Hospitalization, Disabling)
  Sender: FDA-Public Use
  Company Number: RO-ABBVIE-21K-135-4160271-00

PATIENT
  Age: 54 Year
  Sex: Male

DRUGS (3)
  1. CARBIDOPA\LEVODOPA [Suspect]
     Active Substance: CARBIDOPA\LEVODOPA
     Indication: Parkinson^s disease
     Dosage: DM=3.10 DC=3.70 ED=1.90 NRED=1; DMN=0.00 DCN=3.50 EDN=3.50 NREDN=2
     Route: 050
     Dates: start: 20180305, end: 20211113
  2. CARBIDOPA\LEVODOPA [Suspect]
     Active Substance: CARBIDOPA\LEVODOPA
  3. CARBIDOPA\LEVODOPA [Concomitant]
     Active Substance: CARBIDOPA\LEVODOPA
     Indication: Parkinson^s disease
     Route: 050

REACTIONS (5)
  - Cardio-respiratory arrest [Fatal]
  - Fall [Recovered/Resolved]
  - Rib fracture [Recovering/Resolving]
  - Craniocerebral injury [Recovering/Resolving]
  - Coma [Unknown]

NARRATIVE: CASE EVENT DATE: 20211111
